FAERS Safety Report 18180409 (Version 1)
Quarter: 2020Q3

REPORT INFORMATION
  Report Type: Spontaneous
  Country: US (occurrence: US)
  Receive Date: 20200821
  Receipt Date: 20200821
  Transmission Date: 20201103
  Serious: No
  Sender: FDA-Public Use
  Company Number: US-BAUSCH-BL-2020-022890

PATIENT
  Age: 68 Year
  Sex: Female

DRUGS (2)
  1. LACRISERT [Suspect]
     Active Substance: HYDROXYPROPYL CELLULOSE
     Indication: DRY EYE
     Dosage: 4 TOTAL INSERTS PER DAY, 2 IN EACH EYE THROUGHOUT THE DAY AS NEEDED
     Route: 047
     Dates: start: 1988
  2. LACRISERT [Suspect]
     Active Substance: HYDROXYPROPYL CELLULOSE
     Dosage: 6 TOTAL INSERTS PER DAY, 3 IN EACH EYE THROUGHOUT THE DAY AS NEEDED
     Route: 047

REACTIONS (5)
  - Therapy interrupted [Unknown]
  - Dry eye [Not Recovered/Not Resolved]
  - Incorrect dose administered [Unknown]
  - Product availability issue [Unknown]
  - Multiple use of single-use product [Unknown]

NARRATIVE: CASE EVENT DATE: 2020
